FAERS Safety Report 18832457 (Version 1)
Quarter: 2021Q1

REPORT INFORMATION
  Report Type: Spontaneous
  Country: MX (occurrence: MX)
  Receive Date: 20210203
  Receipt Date: 20210203
  Transmission Date: 20210419
  Serious: Yes (Death, Other)
  Sender: FDA-Public Use
  Company Number: MX-JNJFOC-20210201160

PATIENT
  Age: 94 Year
  Sex: Female
  Weight: 40 kg

DRUGS (1)
  1. XARELTO [Suspect]
     Active Substance: RIVAROXABAN
     Indication: PRODUCT USED FOR UNKNOWN INDICATION
     Dosage: 15 MG, QD
     Route: 048
     Dates: start: 20160930

REACTIONS (3)
  - Product use issue [Unknown]
  - Brain hypoxia [Fatal]
  - Off label use [Unknown]

NARRATIVE: CASE EVENT DATE: 20210115
